FAERS Safety Report 5236864-1 (Version None)
Quarter: 2007Q1

REPORT INFORMATION
  Report Type: 
  Country: None (occurrence: None)
  Receive Date: 20061208
  Receipt Date: 20050517
  Transmission Date: 20070707
  Serious: Yes (Other)
  Sender: FDA-Public Use
  Company Number: 2005UW07629

PATIENT
  Age: 66 Year
  Sex: Female
  Weight: 62.595 kg

DRUGS (3)
  1. CRESTOR [Suspect]
     Indication: BLOOD CHOLESTEROL INCREASED
     Dosage: 5 MG PO
     Dates: start: 20050517
  2. NORVASC [Concomitant]
  3. ATACAND [Concomitant]

REACTIONS (3)
  - EYE PRURITUS [None]
  - LACRIMATION INCREASED [None]
  - TENSION [None]
